FAERS Safety Report 19418825 (Version 2)
Quarter: 2021Q2

REPORT INFORMATION
  Report Type: Spontaneous
  Country: KR (occurrence: KR)
  Receive Date: 20210615
  Receipt Date: 20210618
  Transmission Date: 20210717
  Serious: No
  Sender: FDA-Public Use
  Company Number: KR-ELI_LILLY_AND_COMPANY-KR202106002937

PATIENT
  Sex: Female

DRUGS (1)
  1. ZYPREXA [Suspect]
     Active Substance: OLANZAPINE
     Indication: PRODUCT USED FOR UNKNOWN INDICATION
     Dosage: UNK, UNKNOWN
     Route: 065

REACTIONS (10)
  - Discomfort [Unknown]
  - Headache [Unknown]
  - Renal disorder [Unknown]
  - Visual impairment [Unknown]
  - Morbid thoughts [Unknown]
  - Obesity [Unknown]
  - Increased appetite [Unknown]
  - Liver disorder [Unknown]
  - Oral disorder [Unknown]
  - Gastrointestinal disorder [Unknown]
